FAERS Safety Report 6387720-7 (Version None)
Quarter: 2009Q4

REPORT INFORMATION
  Report Type: 
  Country: None (occurrence: None)
  Receive Date: 20091005
  Receipt Date: 20090923
  Transmission Date: 20100525
  Serious: Yes (Hospitalization, Other)
  Sender: FDA-Public Use
  Company Number: FR-ELI_LILLY_AND_COMPANY-FR200909005837

PATIENT
  Age: 65 Year
  Sex: Male

DRUGS (4)
  1. ALIMTA [Suspect]
     Indication: LUNG NEOPLASM MALIGNANT
     Dosage: 500 MG/M2, EVERY 3 WEEKS
     Route: 042
     Dates: start: 20080101, end: 20090901
  2. FOLIC ACID [Concomitant]
     Indication: PROPHYLAXIS
     Dates: start: 20080101
  3. VITAMIN B-12 [Concomitant]
     Indication: PROPHYLAXIS
     Dates: start: 20080101
  4. CORTICOSTEROIDS [Concomitant]
     Indication: PROPHYLAXIS
     Dates: start: 20080101

REACTIONS (8)
  - ANAEMIA [None]
  - CHOLESTASIS [None]
  - CONJUNCTIVITIS [None]
  - DERMATITIS [None]
  - GENERALISED OEDEMA [None]
  - HYPOCHOLESTEROLAEMIA [None]
  - HYPOPROTEINAEMIA [None]
  - PYREXIA [None]
